FAERS Safety Report 23388176 (Version 1)
Quarter: 2024Q1

REPORT INFORMATION
  Report Type: Spontaneous
  Country: US (occurrence: None)
  Receive Date: 20240110
  Receipt Date: 20240110
  Transmission Date: 20240410
  Serious: Yes (Life-Threatening, Hospitalization)
  Sender: FDA-Public Use
  Company Number: None

PATIENT
  Age: 52 Year
  Sex: Male
  Weight: 79.4 kg

DRUGS (1)
  1. FASENRA [Suspect]
     Active Substance: BENRALIZUMAB
     Indication: Asthma
     Dosage: 30 MG Q8W SUBCUTANEOUS?
     Route: 058
     Dates: start: 20231025, end: 20240104

REACTIONS (2)
  - Visual impairment [None]
  - Encephalitis [None]

NARRATIVE: CASE EVENT DATE: 20240103
